FAERS Safety Report 17362842 (Version 1)
Quarter: 2020Q1

REPORT INFORMATION
  Report Type: Report from Study
  Country: US (occurrence: US)
  Receive Date: 20200203
  Receipt Date: 20200203
  Transmission Date: 20200409
  Serious: No
  Sender: FDA-Public Use
  Company Number: US-SHIRE-US202003036

PATIENT
  Age: 80 Year

DRUGS (3)
  1. XIIDRA [Suspect]
     Active Substance: LIFITEGRAST
     Indication: EYE IRRITATION
     Dosage: UNK, 2X/DAY:BID
     Route: 047
     Dates: start: 20200102
  2. XIIDRA [Suspect]
     Active Substance: LIFITEGRAST
     Indication: SUPERFICIAL INJURY OF EYE
  3. XIIDRA [Suspect]
     Active Substance: LIFITEGRAST
     Indication: VISION BLURRED

REACTIONS (3)
  - Superficial injury of eye [Recovering/Resolving]
  - Vision blurred [Not Recovered/Not Resolved]
  - Eye irritation [Recovering/Resolving]

NARRATIVE: CASE EVENT DATE: 20200102
